FAERS Safety Report 4699211-X (Version None)
Quarter: 2005Q2

REPORT INFORMATION
  Report Type: 
  Country: None (occurrence: None)
  Receive Date: 20050622
  Receipt Date: 20050615
  Transmission Date: 20051028
  Serious: Yes (Hospitalization, Other)
  Sender: FDA-Public Use
  Company Number: 2005049156

PATIENT
  Age: 12 Year
  Sex: Female

DRUGS (1)
  1. PREDNISONE [Suspect]
     Indication: AUTOIMMUNE HEPATITIS
     Dosage: ORAL
     Route: 048
     Dates: start: 20011001

REACTIONS (3)
  - BACK INJURY [None]
  - BONE DISORDER [None]
  - SPINAL COMPRESSION FRACTURE [None]
